FAERS Safety Report 5927766-3 (Version None)
Quarter: 2008Q4

REPORT INFORMATION
  Report Type: 
  Country: None (occurrence: None)
  Receive Date: 20081023
  Receipt Date: 20080424
  Transmission Date: 20090506
  Serious: Yes (Other)
  Sender: FDA-Public Use
  Company Number: US-ASTRAZENECA-2008UW07693

PATIENT
  Age: 73 Year
  Sex: Male

DRUGS (4)
  1. MERREM [Suspect]
     Indication: PERITONITIS
     Route: 042
  2. MERREM [Suspect]
     Indication: SEPSIS
     Route: 042
  3. LEVO [Concomitant]
  4. VANCOMYCIN [Concomitant]

REACTIONS (1)
  - CONVULSION [None]
